FAERS Safety Report 5678054-4 (Version None)
Quarter: 2008Q1

REPORT INFORMATION
  Report Type: 
  Country: None (occurrence: None)
  Receive Date: 20080324
  Receipt Date: 20080324
  Transmission Date: 20080703
  Serious: Yes (Hospitalization)
  Sender: FDA-Public Use
  Company Number: None

PATIENT
  Age: 67 Year
  Sex: Female
  Weight: 125 kg

DRUGS (2)
  1. CLOFARABINE [Suspect]
     Indication: LYMPHOMA
     Dosage: 4MG/M2 QD X 5 DAYS IV
     Route: 042
     Dates: start: 20080204, end: 20080208
  2. CLOFARABINE [Suspect]
     Indication: LYMPHOMA
     Dosage: 4MG/M2 QD X 5 DAYS IV
     Route: 042
     Dates: start: 20080303, end: 20080307

REACTIONS (6)
  - ATRIAL FIBRILLATION [None]
  - HAEMOGLOBIN DECREASED [None]
  - PAIN IN JAW [None]
  - PARAESTHESIA [None]
  - PRURITUS [None]
  - TACHYCARDIA [None]
